FAERS Safety Report 15860254 (Version 5)
Quarter: 2021Q2

REPORT INFORMATION
  Report Type: Report from Study
  Country: JP (occurrence: JP)
  Receive Date: 20190123
  Receipt Date: 20210406
  Transmission Date: 20210716
  Serious: Yes (Hospitalization, Other)
  Sender: FDA-Public Use
  Company Number: JP-TAKEDA-2019MPI001138

PATIENT
  Age: 64 Year
  Sex: Male
  Weight: 75.3 kg

DRUGS (90)
  1. BORTEZOMIB. [Suspect]
     Active Substance: BORTEZOMIB
     Dosage: 1.3 MILLIGRAM/SQ. METER, QD
     Route: 065
     Dates: start: 20180326, end: 20180326
  2. BORTEZOMIB. [Suspect]
     Active Substance: BORTEZOMIB
     Dosage: 1 MILLIGRAM/SQ. METER, QD
     Route: 065
     Dates: start: 20180611, end: 20180611
  3. BORTEZOMIB. [Suspect]
     Active Substance: BORTEZOMIB
     Dosage: 1 MILLIGRAM/SQ. METER, QD
     Route: 065
     Dates: start: 20180713, end: 20180713
  4. BORTEZOMIB. [Suspect]
     Active Substance: BORTEZOMIB
     Dosage: 0.7 MILLIGRAM/SQ. METER, QD
     Route: 065
     Dates: start: 20180813, end: 20180813
  5. DARZALEX [Suspect]
     Active Substance: DARATUMUMAB
     Dosage: 16 MILLIGRAM/KILOGRAM, QD
     Route: 041
     Dates: start: 20180216, end: 20180216
  6. DARZALEX [Suspect]
     Active Substance: DARATUMUMAB
     Dosage: 16 MILLIGRAM/KILOGRAM, QD
     Route: 041
     Dates: start: 20180302, end: 20180302
  7. DARZALEX [Suspect]
     Active Substance: DARATUMUMAB
     Dosage: 16 MILLIGRAM/KILOGRAM, QD
     Route: 041
     Dates: start: 20180330, end: 20180330
  8. DARZALEX [Suspect]
     Active Substance: DARATUMUMAB
     Dosage: 16 MILLIGRAM/KILOGRAM, QD
     Route: 041
     Dates: start: 20180413, end: 20180413
  9. DARZALEX [Suspect]
     Active Substance: DARATUMUMAB
     Dosage: 16 MILLIGRAM/KILOGRAM, QD
     Route: 041
     Dates: start: 20181115, end: 20181115
  10. DEXART [Suspect]
     Active Substance: DEXAMETHASONE SODIUM PHOSPHATE
     Dosage: 20 MILLIGRAM, QD
     Route: 065
     Dates: start: 20180226, end: 20180227
  11. DEXART [Suspect]
     Active Substance: DEXAMETHASONE SODIUM PHOSPHATE
     Dosage: 20 MILLIGRAM, QD
     Route: 065
     Dates: start: 20180622, end: 20180623
  12. INAVIR [ACICLOVIR] [Concomitant]
     Dosage: UNK
     Route: 055
     Dates: start: 20180307, end: 20180307
  13. BORTEZOMIB. [Suspect]
     Active Substance: BORTEZOMIB
     Dosage: 1 MILLIGRAM/SQ. METER
     Route: 065
     Dates: start: 20180601, end: 20180601
  14. BORTEZOMIB. [Suspect]
     Active Substance: BORTEZOMIB
     Dosage: 1 MILLIGRAM/SQ. METER, QD
     Route: 065
     Dates: start: 20180608, end: 20180608
  15. BORTEZOMIB. [Suspect]
     Active Substance: BORTEZOMIB
     Dosage: 0.7 MILLIGRAM/SQ. METER, QD
     Route: 065
     Dates: start: 20180803, end: 20180803
  16. DARZALEX [Suspect]
     Active Substance: DARATUMUMAB
     Dosage: 16 MILLIGRAM/KILOGRAM, QD
     Route: 041
     Dates: start: 20180824, end: 20180824
  17. DARZALEX [Suspect]
     Active Substance: DARATUMUMAB
     Dosage: 16 MILLIGRAM/KILOGRAM, QD
     Route: 041
     Dates: start: 20180920, end: 20180920
  18. DEXART [Suspect]
     Active Substance: DEXAMETHASONE SODIUM PHOSPHATE
     Dosage: 20 MILLIGRAM, QD
     Route: 065
     Dates: start: 20180223, end: 20180224
  19. DEXART [Suspect]
     Active Substance: DEXAMETHASONE SODIUM PHOSPHATE
     Dosage: 20 MILLIGRAM, QD
     Route: 065
     Dates: start: 20180302, end: 20180303
  20. DEXART [Suspect]
     Active Substance: DEXAMETHASONE SODIUM PHOSPHATE
     Dosage: 20 MILLIGRAM, QD
     Route: 065
     Dates: start: 20180330, end: 20180330
  21. DENOSINE [ADENOSINE TRIPHOSPHATE] [Concomitant]
     Active Substance: ADENOSINE TRIPHOSPHATE
     Dosage: 360 MILLIGRAM, QD
     Route: 041
     Dates: start: 20180421
  22. BORTEZOMIB. [Suspect]
     Active Substance: BORTEZOMIB
     Dosage: 1.3 MILLIGRAM/SQ. METER, QD
     Route: 065
     Dates: start: 20180216, end: 20180216
  23. BORTEZOMIB. [Suspect]
     Active Substance: BORTEZOMIB
     Dosage: 1 MILLIGRAM/SQ. METER, QD
     Route: 065
     Dates: start: 20180720, end: 20180720
  24. DARZALEX [Suspect]
     Active Substance: DARATUMUMAB
     Indication: PLASMA CELL MYELOMA
     Dosage: 16 MILLIGRAM/KILOGRAM, QD
     Route: 041
     Dates: start: 20180201, end: 20180201
  25. DARZALEX [Suspect]
     Active Substance: DARATUMUMAB
     Dosage: 16 MILLIGRAM/KILOGRAM, QD
     Route: 041
     Dates: start: 20180209, end: 20180209
  26. DARZALEX [Suspect]
     Active Substance: DARATUMUMAB
     Dosage: 16 MILLIGRAM/KILOGRAM, QD
     Route: 041
     Dates: start: 20180323, end: 20180323
  27. DEXART [Suspect]
     Active Substance: DEXAMETHASONE SODIUM PHOSPHATE
     Dosage: 20 MILLIGRAM, QD
     Route: 065
     Dates: start: 20180205, end: 20180206
  28. DEXART [Suspect]
     Active Substance: DEXAMETHASONE SODIUM PHOSPHATE
     Dosage: 20 MILLIGRAM, QD
     Route: 065
     Dates: start: 20180406, end: 20180406
  29. DEXART [Suspect]
     Active Substance: DEXAMETHASONE SODIUM PHOSPHATE
     Dosage: 20 MILLIGRAM, QD
     Route: 065
     Dates: start: 20180413, end: 20180414
  30. DEXART [Suspect]
     Active Substance: DEXAMETHASONE SODIUM PHOSPHATE
     Dosage: 20 MILLIGRAM, QD
     Route: 065
     Dates: start: 20180601, end: 20180602
  31. DEXART [Suspect]
     Active Substance: DEXAMETHASONE SODIUM PHOSPHATE
     Dosage: 20 MILLIGRAM, QD
     Route: 065
     Dates: start: 20180611, end: 20180612
  32. DEXART [Suspect]
     Active Substance: DEXAMETHASONE SODIUM PHOSPHATE
     Dosage: 20 MILLIGRAM, QD
     Route: 065
     Dates: start: 20180803, end: 20180804
  33. DEXART [Suspect]
     Active Substance: DEXAMETHASONE SODIUM PHOSPHATE
     Dosage: 20 MILLIGRAM, QD
     Route: 065
     Dates: start: 20180806, end: 20180807
  34. DEXART [Suspect]
     Active Substance: DEXAMETHASONE SODIUM PHOSPHATE
     Dosage: 20 MILLIGRAM, QD
     Route: 065
     Dates: start: 20180824, end: 20180824
  35. DEXART [Suspect]
     Active Substance: DEXAMETHASONE SODIUM PHOSPHATE
     Dosage: 20 MILLIGRAM, QD
     Route: 065
     Dates: start: 20181018, end: 20181018
  36. BORTEZOMIB. [Suspect]
     Active Substance: BORTEZOMIB
     Dosage: 1 MILLIGRAM/SQ. METER, QD
     Route: 065
     Dates: start: 20180423, end: 20180423
  37. DARZALEX [Suspect]
     Active Substance: DARATUMUMAB
     Dosage: 16 MILLIGRAM/KILOGRAM, QD
     Route: 041
     Dates: start: 20180601, end: 20180601
  38. DEXART [Suspect]
     Active Substance: DEXAMETHASONE SODIUM PHOSPHATE
     Dosage: 20 MILLIGRAM, QD
     Route: 065
     Dates: start: 20180305, end: 20180306
  39. DEXART [Suspect]
     Active Substance: DEXAMETHASONE SODIUM PHOSPHATE
     Dosage: 20 MILLIGRAM, QD
     Route: 065
     Dates: start: 20180713, end: 20180714
  40. DEXART [Suspect]
     Active Substance: DEXAMETHASONE SODIUM PHOSPHATE
     Dosage: 20 MILLIGRAM, QD
     Route: 065
     Dates: start: 20180813, end: 20180814
  41. DEXART [Suspect]
     Active Substance: DEXAMETHASONE SODIUM PHOSPHATE
     Dosage: 20 MILLIGRAM, QD
     Route: 065
     Dates: start: 20190110, end: 20190110
  42. BORTEZOMIB. [Suspect]
     Active Substance: BORTEZOMIB
     Dosage: 1 MILLIGRAM/SQ. METER, QD
     Route: 065
     Dates: start: 20180416, end: 20180416
  43. BORTEZOMIB. [Suspect]
     Active Substance: BORTEZOMIB
     Dosage: 1 MILLIGRAM/SQ. METER, QD
     Route: 065
     Dates: start: 20180604, end: 20180604
  44. BORTEZOMIB. [Suspect]
     Active Substance: BORTEZOMIB
     Dosage: 1 MILLIGRAM/SQ. METER, QD
     Route: 065
     Dates: start: 20180625, end: 20180625
  45. BORTEZOMIB. [Suspect]
     Active Substance: BORTEZOMIB
     Dosage: 1 MILLIGRAM/SQ. METER, QD
     Route: 065
     Dates: start: 20180702, end: 20180702
  46. BORTEZOMIB. [Suspect]
     Active Substance: BORTEZOMIB
     Dosage: 0.7 MILLIGRAM/SQ. METER, QD
     Route: 065
     Dates: start: 20180810, end: 20180810
  47. DARZALEX [Suspect]
     Active Substance: DARATUMUMAB
     Dosage: 16 MILLIGRAM/KILOGRAM, QD
     Route: 041
     Dates: start: 20180316, end: 20180316
  48. DARZALEX [Suspect]
     Active Substance: DARATUMUMAB
     Dosage: 16 MILLIGRAM/KILOGRAM, QD
     Route: 041
     Dates: start: 20180406, end: 20180406
  49. DARZALEX [Suspect]
     Active Substance: DARATUMUMAB
     Dosage: 16 MILLIGRAM/KILOGRAM, QD
     Route: 041
     Dates: start: 20180713, end: 20180713
  50. DARZALEX [Suspect]
     Active Substance: DARATUMUMAB
     Dosage: 16 MILLIGRAM/KILOGRAM, QD
     Route: 041
     Dates: start: 20181018, end: 20181018
  51. DARZALEX [Suspect]
     Active Substance: DARATUMUMAB
     Dosage: 16 MILLIGRAM/KILOGRAM, QD
     Route: 041
     Dates: start: 20181213, end: 20181213
  52. DEXART [Suspect]
     Active Substance: DEXAMETHASONE SODIUM PHOSPHATE
     Dosage: 20 MILLIGRAM, QD
     Route: 065
     Dates: start: 20180212, end: 20180213
  53. DEXART [Suspect]
     Active Substance: DEXAMETHASONE SODIUM PHOSPHATE
     Dosage: 20 MILLIGRAM, QD
     Route: 065
     Dates: start: 20180216, end: 20180216
  54. DEXART [Suspect]
     Active Substance: DEXAMETHASONE SODIUM PHOSPHATE
     Dosage: 20 MILLIGRAM, QD
     Route: 065
     Dates: start: 20180604, end: 20180605
  55. DEXART [Suspect]
     Active Substance: DEXAMETHASONE SODIUM PHOSPHATE
     Dosage: 20 MILLIGRAM, QD
     Route: 065
     Dates: start: 20180723, end: 20180724
  56. DEXART [Suspect]
     Active Substance: DEXAMETHASONE SODIUM PHOSPHATE
     Dosage: 20 MILLIGRAM, QD
     Route: 065
     Dates: start: 20180810, end: 20180811
  57. BORTEZOMIB. [Suspect]
     Active Substance: BORTEZOMIB
     Dosage: 1.3 MILLIGRAM/SQ. METER, QD
     Route: 065
     Dates: start: 20180212, end: 20180212
  58. BORTEZOMIB. [Suspect]
     Active Substance: BORTEZOMIB
     Dosage: 1 MILLIGRAM/SQ. METER, QD
     Route: 065
     Dates: start: 20180413, end: 20180413
  59. BORTEZOMIB. [Suspect]
     Active Substance: BORTEZOMIB
     Dosage: 1 MILLIGRAM/SQ. METER, QD
     Route: 065
     Dates: start: 20180622, end: 20180622
  60. DEXART [Suspect]
     Active Substance: DEXAMETHASONE SODIUM PHOSPHATE
     Dosage: 20 MILLIGRAM, QD
     Route: 065
     Dates: start: 20180316, end: 20180316
  61. DEXART [Suspect]
     Active Substance: DEXAMETHASONE SODIUM PHOSPHATE
     Dosage: 20 MILLIGRAM, QD
     Route: 065
     Dates: start: 20180326, end: 20180327
  62. DEXART [Suspect]
     Active Substance: DEXAMETHASONE SODIUM PHOSPHATE
     Dosage: 20 MILLIGRAM, QD
     Route: 065
     Dates: start: 20180629, end: 20180630
  63. DEXART [Suspect]
     Active Substance: DEXAMETHASONE SODIUM PHOSPHATE
     Dosage: 20 MILLIGRAM, QD
     Route: 065
     Dates: start: 20180717, end: 20180718
  64. BORTEZOMIB. [Suspect]
     Active Substance: BORTEZOMIB
     Dosage: 1.3 MILLIGRAM/SQ. METER, QD
     Route: 065
     Dates: start: 20180205, end: 20180205
  65. BORTEZOMIB. [Suspect]
     Active Substance: BORTEZOMIB
     Dosage: 1.3 MILLIGRAM/SQ. METER, QD
     Route: 065
     Dates: start: 20180209, end: 20180209
  66. BORTEZOMIB. [Suspect]
     Active Substance: BORTEZOMIB
     Dosage: 1.3 MILLIGRAM/SQ. METER, QD
     Route: 065
     Dates: start: 20180226, end: 20180226
  67. BORTEZOMIB. [Suspect]
     Active Substance: BORTEZOMIB
     Dosage: 1.3 MILLIGRAM/SQ. METER, QD
     Route: 065
     Dates: start: 20180302, end: 20180302
  68. BORTEZOMIB. [Suspect]
     Active Substance: BORTEZOMIB
     Dosage: 1.3 MILLIGRAM/SQ. METER, QD
     Route: 065
     Dates: start: 20180323, end: 20180323
  69. BORTEZOMIB. [Suspect]
     Active Substance: BORTEZOMIB
     Dosage: 1 MILLIGRAM/SQ. METER, QD
     Route: 065
     Dates: start: 20180629, end: 20180629
  70. BORTEZOMIB. [Suspect]
     Active Substance: BORTEZOMIB
     Dosage: 1 MILLIGRAM/SQ. METER, QD
     Route: 065
     Dates: start: 20180717, end: 20180717
  71. DARZALEX [Suspect]
     Active Substance: DARATUMUMAB
     Dosage: 16 MILLIGRAM/KILOGRAM, QD
     Route: 041
     Dates: start: 20180223, end: 20180223
  72. DEXART [Suspect]
     Active Substance: DEXAMETHASONE SODIUM PHOSPHATE
     Indication: PLASMA CELL MYELOMA
     Dosage: 20 MILLIGRAM, QD
     Route: 065
     Dates: start: 20180201, end: 20180202
  73. DEXART [Suspect]
     Active Substance: DEXAMETHASONE SODIUM PHOSPHATE
     Dosage: 20 MILLIGRAM, QD
     Route: 065
     Dates: start: 20180323, end: 20180324
  74. DEXART [Suspect]
     Active Substance: DEXAMETHASONE SODIUM PHOSPHATE
     Dosage: 20 MILLIGRAM, QD
     Route: 065
     Dates: start: 20180920, end: 20180920
  75. BORTEZOMIB. [Suspect]
     Active Substance: BORTEZOMIB
     Indication: PLASMA CELL MYELOMA
     Dosage: 1.3 MILLIGRAM/SQ. METER, QD
     Route: 065
     Dates: start: 20180201, end: 20180201
  76. BORTEZOMIB. [Suspect]
     Active Substance: BORTEZOMIB
     Dosage: 1.3 MILLIGRAM/SQ. METER, QD
     Route: 065
     Dates: start: 20180223, end: 20180223
  77. BORTEZOMIB. [Suspect]
     Active Substance: BORTEZOMIB
     Dosage: 1 MILLIGRAM/SQ. METER, QD
     Route: 065
     Dates: start: 20180420, end: 20180420
  78. BORTEZOMIB. [Suspect]
     Active Substance: BORTEZOMIB
     Dosage: 1 MILLIGRAM/SQ. METER, QD
     Route: 065
     Dates: start: 20180723, end: 20180723
  79. BORTEZOMIB. [Suspect]
     Active Substance: BORTEZOMIB
     Dosage: 0.7 MILLIGRAM/SQ. METER, QD
     Route: 065
     Dates: start: 20180806, end: 20180806
  80. DARZALEX [Suspect]
     Active Substance: DARATUMUMAB
     Dosage: 16 MILLIGRAM/KILOGRAM, QD
     Route: 041
     Dates: start: 20180622, end: 20180622
  81. DARZALEX [Suspect]
     Active Substance: DARATUMUMAB
     Dosage: 16 MILLIGRAM/KILOGRAM, QD
     Route: 041
     Dates: start: 20180803, end: 20180803
  82. DARZALEX [Suspect]
     Active Substance: DARATUMUMAB
     Dosage: 16 MILLIGRAM/KILOGRAM, QD
     Route: 041
     Dates: start: 20190110, end: 20190110
  83. DEXART [Suspect]
     Active Substance: DEXAMETHASONE SODIUM PHOSPHATE
     Dosage: 20 MILLIGRAM, QD
     Route: 065
     Dates: start: 20180209, end: 20180210
  84. DEXART [Suspect]
     Active Substance: DEXAMETHASONE SODIUM PHOSPHATE
     Dosage: 20 MILLIGRAM, QD
     Route: 065
     Dates: start: 20180416, end: 20180417
  85. DEXART [Suspect]
     Active Substance: DEXAMETHASONE SODIUM PHOSPHATE
     Dosage: 20 MILLIGRAM, QD
     Route: 065
     Dates: start: 20180608, end: 20180609
  86. DEXART [Suspect]
     Active Substance: DEXAMETHASONE SODIUM PHOSPHATE
     Dosage: 20 MILLIGRAM, QD
     Route: 065
     Dates: start: 20180625, end: 20180626
  87. DEXART [Suspect]
     Active Substance: DEXAMETHASONE SODIUM PHOSPHATE
     Dosage: 20 MILLIGRAM, QD
     Route: 065
     Dates: start: 20180702, end: 20180703
  88. DEXART [Suspect]
     Active Substance: DEXAMETHASONE SODIUM PHOSPHATE
     Dosage: 20 MILLIGRAM, QD
     Route: 065
     Dates: start: 20180720, end: 20180721
  89. DEXART [Suspect]
     Active Substance: DEXAMETHASONE SODIUM PHOSPHATE
     Dosage: 20 MILLIGRAM, QD
     Route: 065
     Dates: start: 20181115, end: 20181115
  90. DEXART [Suspect]
     Active Substance: DEXAMETHASONE SODIUM PHOSPHATE
     Dosage: 20 MILLIGRAM, QD
     Route: 065
     Dates: start: 20181213, end: 20181213

REACTIONS (7)
  - Epistaxis [Recovered/Resolved]
  - Pneumonia cytomegaloviral [Recovered/Resolved]
  - White blood cell count decreased [Recovering/Resolving]
  - Peripheral motor neuropathy [Recovering/Resolving]
  - Influenza [Recovered/Resolved]
  - Neutrophil count decreased [Recovering/Resolving]
  - Platelet count decreased [Recovering/Resolving]

NARRATIVE: CASE EVENT DATE: 20180212
